FAERS Safety Report 9646306 (Version 1)
Quarter: 2013Q4

REPORT INFORMATION
  Report Type: Spontaneous
  Country: US (occurrence: US)
  Receive Date: 20131025
  Receipt Date: 20131025
  Transmission Date: 20140711
  Serious: Yes (Death, Hospitalization, Other)
  Sender: FDA-Public Use
  Company Number: US-TAKEDA-2013TUS001676

PATIENT
  Sex: 0

DRUGS (1)
  1. COLCHICINE [Suspect]
     Indication: CONSTIPATION
     Dosage: 49 TABLET

REACTIONS (10)
  - Acidosis [Fatal]
  - Multi-organ failure [Fatal]
  - Cardiac arrest [Unknown]
  - Apnoea [Unknown]
  - Fall [Unknown]
  - Diarrhoea [Unknown]
  - Vomiting [Unknown]
  - Nausea [Unknown]
  - Overdose [Unknown]
  - Off label use [Unknown]
